FAERS Safety Report 4595906-7 (Version None)
Quarter: 2005Q1

REPORT INFORMATION
  Report Type: 
  Country: None (occurrence: None)
  Receive Date: 20050224
  Receipt Date: 20050204
  Transmission Date: 20050727
  Serious: No
  Sender: FDA-Public Use
  Company Number: EWC050242476

PATIENT
  Sex: Female
  Weight: 65 kg

DRUGS (2)
  1. OLANZAPINE [Suspect]
     Indication: PSYCHOTIC DISORDER
     Dosage: 10 MG
  2. LEVONORGESTREL AND ETHINYL ESTRADIOL [Concomitant]

REACTIONS (1)
  - METRORRHAGIA [None]
